FAERS Safety Report 5520948-4 (Version None)
Quarter: 2007Q4

REPORT INFORMATION
  Report Type: 
  Country: None (occurrence: None)
  Receive Date: 20071115
  Receipt Date: 20071112
  Transmission Date: 20080405
  Serious: No
  Sender: FDA-Public Use
  Company Number: 07H-163-0313459-00

PATIENT
  Age: 86 Year
  Sex: Female
  Weight: 49.8957 kg

DRUGS (3)
  1. MORPHINE SULFATE INJ [Suspect]
     Indication: PAIN
     Dosage: SEE IMAGE
     Route: 042
     Dates: start: 20071023, end: 20071023
  2. MORPHINE SULFATE INJ [Suspect]
     Indication: PAIN
     Dosage: SEE IMAGE
     Route: 042
     Dates: start: 20071023, end: 20071023
  3. MORPHINE SULFATE INJ [Suspect]
     Indication: PAIN
     Dosage: SEE IMAGE
     Route: 042
     Dates: start: 20071023, end: 20071023

REACTIONS (2)
  - DRUG HYPERSENSITIVITY [None]
  - UNRESPONSIVE TO STIMULI [None]
